FAERS Safety Report 20722998 (Version 2)
Quarter: 2022Q2

REPORT INFORMATION
  Report Type: Report from Study
  Country: US (occurrence: US)
  Receive Date: 20220419
  Receipt Date: 20220421
  Transmission Date: 20220721
  Serious: Yes (Death)
  Sender: FDA-Public Use
  Company Number: US-BAUSCH-BL-2022-000379

PATIENT
  Age: 78 Year
  Sex: Male
  Weight: 97.610 kg

DRUGS (3)
  1. XIFAXAN [Suspect]
     Active Substance: RIFAXIMIN
     Indication: Hepatic cirrhosis
     Route: 065
     Dates: start: 202103
  2. XIFAXAN [Suspect]
     Active Substance: RIFAXIMIN
     Route: 065
     Dates: start: 202201
  3. URSODIOL [Concomitant]
     Active Substance: URSODIOL
     Indication: Hepatic enzyme abnormal
     Dosage: TWICE A DAY
     Dates: start: 2021

REACTIONS (4)
  - Hepatic cirrhosis [Fatal]
  - Platelet count decreased [Fatal]
  - Haemorrhage [Fatal]
  - Therapy interrupted [Unknown]

NARRATIVE: CASE EVENT DATE: 20220313
